FAERS Safety Report 9544241 (Version 1)
Quarter: 2013Q3

REPORT INFORMATION
  Report Type: Spontaneous
  Country: FR (occurrence: FR)
  Receive Date: 20130923
  Receipt Date: 20130923
  Transmission Date: 20140515
  Serious: Yes (Disabling)
  Sender: FDA-Public Use
  Company Number: FR-009507513-1302FRA010629

PATIENT
  Age: 35 Year
  Sex: Female

DRUGS (1)
  1. CYCLEANE 20 [Suspect]
     Indication: CONTRACEPTION
     Dosage: UNK
     Route: 048
     Dates: end: 20080606

REACTIONS (2)
  - Cerebrovascular accident [Recovered/Resolved]
  - Aphasia [Recovered/Resolved]
